FAERS Safety Report 22616545 (Version 1)
Quarter: 2023Q2

REPORT INFORMATION
  Report Type: Spontaneous
  Country: US (occurrence: US)
  Receive Date: 20230619
  Receipt Date: 20230619
  Transmission Date: 20230722
  Serious: No
  Sender: FDA-Public Use
  Company Number: US-ABBVIE-5293897

PATIENT
  Sex: Male

DRUGS (1)
  1. HUMIRA [Suspect]
     Active Substance: ADALIMUMAB
     Indication: Product used for unknown indication
     Route: 058

REACTIONS (4)
  - Condition aggravated [Unknown]
  - Gastrointestinal disorder [Unknown]
  - Idiopathic urticaria [Unknown]
  - Pain [Unknown]

NARRATIVE: CASE EVENT DATE: 20230101
